FAERS Safety Report 7099859-1 (Version None)
Quarter: 2010Q4

REPORT INFORMATION
  Report Type: 
  Country: None (occurrence: None)
  Receive Date: 20101112
  Receipt Date: 20101105
  Transmission Date: 20110411
  Serious: Yes (Other)
  Sender: FDA-Public Use
  Company Number: PHHY2010US62060

PATIENT
  Sex: Female

DRUGS (15)
  1. EXTAVIA [Suspect]
     Indication: MULTIPLE SCLEROSIS
     Dosage: 0.25 MG, QOD
     Route: 058
     Dates: start: 20100804
  2. AMPYRA [Suspect]
     Dosage: UNK
  3. TYLENOL EXTRA-STRENGTH [Concomitant]
     Dosage: UNK
  4. MULTI-VITAMINS [Concomitant]
     Dosage: UNK
  5. GLUCOSAMINE /CHONDROITIN [Concomitant]
     Dosage: UNK
  6. CALCIUM [Concomitant]
     Dosage: UNK
  7. MAGNESIUM [Concomitant]
     Dosage: UNK
  8. ZINC [Concomitant]
     Dosage: UNK
  9. VALPROIC ACID [Concomitant]
     Dosage: UNK
  10. FISH OIL [Concomitant]
     Dosage: UNK
  11. MEMOREX [Concomitant]
     Dosage: 1000 IU
  12. VITAMIN E [Concomitant]
  13. SHENGEN [Concomitant]
  14. VITAMIN D [Concomitant]
     Dosage: UNK
  15. GINKGO BILOBA [Concomitant]
     Dosage: UNK

REACTIONS (9)
  - DIZZINESS [None]
  - DRY MOUTH [None]
  - FALL [None]
  - FATIGUE [None]
  - INFLUENZA LIKE ILLNESS [None]
  - INJECTION SITE HAEMATOMA [None]
  - PERIPHERAL COLDNESS [None]
  - POOR QUALITY SLEEP [None]
  - THIRST [None]
